FAERS Safety Report 7441135-9 (Version None)
Quarter: 2011Q2

REPORT INFORMATION
  Report Type: 
  Country: None (occurrence: None)
  Receive Date: 20110428
  Receipt Date: 20110418
  Transmission Date: 20111010
  Serious: Yes (Hospitalization)
  Sender: FDA-Public Use
  Company Number: IT-BIOGENIDEC-2010BI020149

PATIENT
  Age: 27 Year
  Sex: Male

DRUGS (4)
  1. TYSABRI [Suspect]
     Indication: RELAPSING-REMITTING MULTIPLE SCLEROSIS
     Route: 042
     Dates: start: 20080522, end: 20091016
  2. AUGMENTIN [Concomitant]
     Dates: start: 20100215, end: 20100220
  3. SOLU-MEDROL [Concomitant]
     Dates: start: 20100215, end: 20100220
  4. FERRO-GRAD [Concomitant]
     Dates: start: 20091025, end: 20100301

REACTIONS (1)
  - APLASIA PURE RED CELL [None]
